FAERS Safety Report 6372148-6 (Version None)
Quarter: 2009Q3

REPORT INFORMATION
  Report Type: 
  Country: None (occurrence: None)
  Receive Date: 20090917
  Receipt Date: 20090904
  Transmission Date: 20100115
  Serious: Yes (Life-Threatening)
  Sender: FDA-Public Use
  Company Number: ADR16082009

PATIENT
  Age: 49 Year
  Sex: Male

DRUGS (11)
  1. CITALOPRAM HYDROBROMIDE [Suspect]
     Indication: ANXIETY
     Dosage: 20 MG ORAL USE
     Route: 048
     Dates: start: 20081101, end: 20090226
  2. CITALOPRAM HYDROBROMIDE [Suspect]
     Indication: MOOD SWINGS
     Dosage: 20 MG ORAL USE
     Route: 048
     Dates: start: 20081101, end: 20090226
  3. AMITRIPTYLINE [Concomitant]
  4. ENALAPRIL MALEATE [Concomitant]
  5. INDAPAMIDE [Concomitant]
  6. OXCARBAZEPINE [Concomitant]
  7. AMLODIPINE [Concomitant]
  8. IBUPROFEN [Concomitant]
  9. PARACETAMOL [Concomitant]
  10. RANITIDINE [Concomitant]
  11. SIMVASTATIN [Concomitant]

REACTIONS (4)
  - AGGRESSION [None]
  - CONFUSIONAL STATE [None]
  - CONVULSION [None]
  - HYPONATRAEMIA [None]
